FAERS Safety Report 6247442-X (Version None)
Quarter: 2009Q2

REPORT INFORMATION
  Report Type: 
  Country: None (occurrence: None)
  Receive Date: 20090626
  Receipt Date: 20090616
  Transmission Date: 20091009
  Serious: Yes (Hospitalization)
  Sender: FDA-Public Use
  Company Number: FR-PFIZER INC-2009227339

PATIENT
  Age: 49 Year

DRUGS (5)
  1. SALAZOPYRIN [Suspect]
     Indication: ANKYLOSING SPONDYLITIS
     Dosage: 1 DF, 1X/DAY
     Route: 048
     Dates: start: 20090401, end: 20090420
  2. ESCITALOPRAM [Concomitant]
     Dosage: 1 DF, 1X/DAY
  3. PRAZEPAM [Concomitant]
     Dosage: 0.5 DF, 2X/DAY
  4. RIFATER [Concomitant]
     Dosage: 5 DF, 1X/DAY
  5. DI-ANTALVIC [Concomitant]
     Dosage: UNK
     Dates: start: 20090201

REACTIONS (1)
  - DRUG RASH WITH EOSINOPHILIA AND SYSTEMIC SYMPTOMS [None]
